FAERS Safety Report 23516726 (Version 1)
Quarter: 2024Q1

REPORT INFORMATION
  Report Type: Spontaneous
  Country: CN (occurrence: CN)
  Receive Date: 20240213
  Receipt Date: 20240213
  Transmission Date: 20240410
  Serious: Yes (Other)
  Sender: FDA-Public Use
  Company Number: CN-SHANGHAI JUNSHI BIOSCIENCES CO., LTD.-CN2021003333

PATIENT

DRUGS (9)
  1. TORIPALIMAB [Suspect]
     Active Substance: TORIPALIMAB
     Indication: Cholangiocarcinoma
     Dosage: 240 MG?D1), EVERY 21 DAYS
     Route: 041
     Dates: start: 20200930, end: 20201021
  2. TORIPALIMAB [Suspect]
     Active Substance: TORIPALIMAB
     Indication: Metastatic neoplasm
     Dosage: 240 MG
     Route: 041
     Dates: start: 20210112, end: 20210116
  3. RAMUCIRUMAB [Concomitant]
     Active Substance: RAMUCIRUMAB
     Indication: Cholangiocarcinoma
     Dosage: 500 MG (D1), EVERY 21 DAYS
     Route: 041
     Dates: start: 20200930, end: 20201021
  4. IPILIMUMAB [Concomitant]
     Active Substance: IPILIMUMAB
     Indication: Cholangiocarcinoma
     Dosage: 50 MG?D1?, EVERY 21 DAYS
     Route: 041
     Dates: start: 20200930, end: 20201021
  5. CATEQUENTINIB [Concomitant]
     Active Substance: CATEQUENTINIB
     Indication: Cholangiocarcinoma
     Dosage: UNK
     Dates: start: 20210202, end: 20210429
  6. CATEQUENTINIB [Concomitant]
     Active Substance: CATEQUENTINIB
     Dosage: UNK
     Dates: start: 20210202, end: 20210429
  7. DECITABINE [Concomitant]
     Active Substance: DECITABINE
     Indication: Cholangiocarcinoma
     Dosage: UNK
     Dates: start: 20210112, end: 20210429
  8. DECITABINE [Concomitant]
     Active Substance: DECITABINE
     Dosage: UNK
  9. PREDNISOLONE [Concomitant]
     Active Substance: PREDNISOLONE
     Indication: Product used for unknown indication
     Dosage: 20 MG
     Dates: start: 20210112

REACTIONS (2)
  - Immune-mediated cystitis [Recovered/Resolved]
  - Off label use [Unknown]

NARRATIVE: CASE EVENT DATE: 20181126
